FAERS Safety Report 7647887-7 (Version None)
Quarter: 2011Q3

REPORT INFORMATION
  Report Type: 
  Country: None (occurrence: None)
  Receive Date: 20110801
  Receipt Date: 20110712
  Transmission Date: 20111222
  Serious: No
  Sender: FDA-Public Use
  Company Number: US-ABBOTT-11P-163-0838849-00

PATIENT
  Sex: Female
  Weight: 51.302 kg

DRUGS (3)
  1. CENTRUM [Concomitant]
     Indication: PRODUCT USED FOR UNKNOWN INDICATION
  2. CALTRATE D [Concomitant]
     Indication: PRODUCT USED FOR UNKNOWN INDICATION
  3. CREON [Suspect]
     Indication: PANCREATITIS
     Dosage: 12000U/ 1 CAP AT PRIMARY MEAL
     Dates: start: 20110603, end: 20110606

REACTIONS (3)
  - EYE PAIN [None]
  - GASTROOESOPHAGEAL REFLUX DISEASE [None]
  - DIAPHRAGMATIC DISORDER [None]
